FAERS Safety Report 6924273-6 (Version None)
Quarter: 2010Q3

REPORT INFORMATION
  Report Type: 
  Country: None (occurrence: None)
  Receive Date: 20100813
  Receipt Date: 20100803
  Transmission Date: 20110219
  Serious: Yes (Death)
  Sender: FDA-Public Use
  Company Number: PL-GENENTECH-305214

PATIENT
  Age: 33 Year
  Sex: Male

DRUGS (9)
  1. RITUXIMAB [Suspect]
     Indication: DIFFUSE LARGE B-CELL LYMPHOMA
     Dosage: UNK
     Route: 065
  2. CYCLOPHOSPHAMIDE [Suspect]
     Indication: DIFFUSE LARGE B-CELL LYMPHOMA
     Dosage: UNK
     Route: 065
  3. DOXORUBICIN HCL [Suspect]
     Indication: DIFFUSE LARGE B-CELL LYMPHOMA
     Dosage: UNK
     Route: 065
  4. PREDNISONE [Suspect]
     Indication: DIFFUSE LARGE B-CELL LYMPHOMA
     Dosage: UNK
     Route: 065
  5. VINCRISTINE [Suspect]
     Indication: DIFFUSE LARGE B-CELL LYMPHOMA
     Dosage: UNK
     Route: 065
  6. TENOFOVIR DISOPROXIL FUMARATE [Concomitant]
     Indication: HIV INFECTION
     Dosage: UNK
  7. LAMIVUDINE [Concomitant]
     Indication: HIV INFECTION
     Dosage: UNK
  8. LOPINAVIR [Concomitant]
     Indication: HIV INFECTION
     Dosage: UNK
  9. RITONAVIR [Concomitant]
     Indication: HIV INFECTION
     Dosage: UNK

REACTIONS (7)
  - ASTHENIA [None]
  - BONE MARROW FAILURE [None]
  - CACHEXIA [None]
  - DEATH [None]
  - DIARRHOEA [None]
  - SKIN ULCER [None]
  - STOMATITIS [None]
